FAERS Safety Report 4491673-6 (Version None)
Quarter: 2004Q4

REPORT INFORMATION
  Report Type: 
  Country: None (occurrence: None)
  Receive Date: 20041029
  Receipt Date: 20041014
  Transmission Date: 20050328
  Serious: Yes (Hospitalization)
  Sender: FDA-Public Use
  Company Number: 2004-0007622

PATIENT
  Age: 42 Year
  Sex: Male
  Weight: 69 kg

DRUGS (10)
  1. VIREAD [Suspect]
     Indication: HIV INFECTION
     Dosage: 300 MG, 1 IN 1 D, ORAL
     Route: 048
     Dates: start: 20030501, end: 20040901
  2. VIDEX [Concomitant]
  3. KALETRA [Concomitant]
  4. PROZAC [Concomitant]
  5. ZYPREXA [Concomitant]
  6. FENOFIBRATE [Concomitant]
  7. DEPAKOTE [Concomitant]
  8. CLOPIXOL (ZUCLOPENTHIXOL HYDROCHLORIDE) [Concomitant]
  9. ORACILLINE (PHENOXYMETHYLPENICILLIN) [Concomitant]
  10. ACETAMINOPHEN [Concomitant]

REACTIONS (9)
  - ANOREXIA [None]
  - BLOOD GLUCOSE INCREASED [None]
  - FANCONI SYNDROME ACQUIRED [None]
  - GENERAL PHYSICAL HEALTH DETERIORATION [None]
  - HAEMATURIA [None]
  - HYPOPHOSPHATAEMIA [None]
  - NEPHROGENIC DIABETES INSIPIDUS [None]
  - RENAL FAILURE [None]
  - RENAL TUBULAR DISORDER [None]
